FAERS Safety Report 7452593-8 (Version None)
Quarter: 2011Q2

REPORT INFORMATION
  Report Type: 
  Country: None (occurrence: None)
  Receive Date: 20110502
  Receipt Date: 20100920
  Transmission Date: 20111010
  Serious: No
  Sender: FDA-Public Use
  Company Number: US-ASTRAZENECA-2010SE44233

PATIENT
  Sex: Female
  Weight: 62.6 kg

DRUGS (13)
  1. NEXIUM [Suspect]
     Route: 048
     Dates: start: 20100101
  2. NEXIUM [Suspect]
     Route: 048
     Dates: start: 20100101
  3. ESTRADIOL [Concomitant]
  4. VITAMIN B6 [Concomitant]
  5. CALCIUM [Concomitant]
  6. NEXIUM [Suspect]
     Indication: HIATUS HERNIA
     Route: 048
     Dates: start: 20090101
  7. VITAMIN D [Concomitant]
  8. BONIVA [Concomitant]
  9. WELLBUTRIN [Concomitant]
  10. NEXIUM [Suspect]
     Route: 048
     Dates: start: 20100101
  11. NEXIUM [Suspect]
     Route: 048
     Dates: start: 20100101
  12. NEXIUM [Suspect]
     Indication: GASTROOESOPHAGEAL REFLUX DISEASE
     Route: 048
     Dates: start: 20090101
  13. VITAMIN B-12 [Concomitant]

REACTIONS (4)
  - OESOPHAGEAL SPASM [None]
  - BRONCHOSPASM [None]
  - DRUG DOSE OMISSION [None]
  - INAPPROPRIATE SCHEDULE OF DRUG ADMINISTRATION [None]
